FAERS Safety Report 6230186-8 (Version None)
Quarter: 2009Q2

REPORT INFORMATION
  Report Type: 
  Country: None (occurrence: None)
  Receive Date: 20090615
  Receipt Date: 20090602
  Transmission Date: 20091009
  Serious: Yes (Other)
  Sender: FDA-Public Use
  Company Number: US-MYLANLABS-2009S1009649

PATIENT
  Age: 55 Year
  Sex: Male

DRUGS (5)
  1. CYCLOSPORINE [Suspect]
     Indication: IMMUNOSUPPRESSION
     Dates: start: 19930201
  2. MYCOPHENOLATE MOFETIL [Suspect]
     Indication: IMMUNOSUPPRESSION
     Dates: start: 19950101
  3. SIROLIMUS [Suspect]
     Indication: IMMUNOSUPPRESSION
  4. AZATHIOPRINE [Concomitant]
     Indication: IMMUNOSUPPRESSION
     Dates: start: 19930201, end: 19950101
  5. PREDNISONE [Concomitant]
     Indication: IMMUNOSUPPRESSION
     Dates: start: 19930201

REACTIONS (5)
  - CHRONIC ALLOGRAFT NEPHROPATHY [None]
  - DIABETES MELLITUS [None]
  - PROTEINURIA [None]
  - RENAL TUBULAR NECROSIS [None]
  - TRANSPLANT REJECTION [None]
